FAERS Safety Report 19332807 (Version 1)
Quarter: 2021Q2

REPORT INFORMATION
  Report Type: Spontaneous
  Country: US (occurrence: US)
  Receive Date: 20210528
  Receipt Date: 20210528
  Transmission Date: 20210717
  Serious: Yes (Other)
  Sender: FDA-Public Use
  Company Number: US-PURDUE-USA-2020-0225980

PATIENT
  Sex: Female

DRUGS (3)
  1. PERCOCET                           /00446701/ [Suspect]
     Active Substance: ACETAMINOPHEN\OXYCODONE HYDROCHLORIDE\OXYCODONE TEREPHTHALATE
     Indication: PAIN MANAGEMENT
     Dosage: UNK
     Route: 065
     Dates: start: 200708
  2. OXYCODONE HYDROCHLORIDE (SIMILAR TO NDA 22?272) [Suspect]
     Active Substance: OXYCODONE HYDROCHLORIDE
     Indication: PAIN MANAGEMENT
     Dosage: UNK
     Route: 065
     Dates: start: 200708
  3. HYDROCODONE BITARTRATE (SIMILAR TO NDA 206627) [Suspect]
     Active Substance: HYDROCODONE BITARTRATE
     Indication: PAIN MANAGEMENT
     Dosage: UNK
     Route: 065
     Dates: start: 200708

REACTIONS (15)
  - Anxiety [Unknown]
  - Sluggishness [Unknown]
  - Fear [Unknown]
  - Nightmare [Unknown]
  - Pain [Unknown]
  - Muscle twitching [Unknown]
  - Muscle spasms [Unknown]
  - Unevaluable event [Unknown]
  - Amnesia [Unknown]
  - Cold sweat [Unknown]
  - Abdominal pain upper [Unknown]
  - Drug dependence [Unknown]
  - Withdrawal syndrome [Unknown]
  - General physical health deterioration [Unknown]
  - Feeling abnormal [Unknown]
